FAERS Safety Report 14694974 (Version 3)
Quarter: 2018Q3

REPORT INFORMATION
  Report Type: Report from Study
  Country: JP (occurrence: JP)
  Receive Date: 20180329
  Receipt Date: 20180926
  Transmission Date: 20181010
  Serious: Yes (Other)
  Sender: FDA-Public Use
  Company Number: JP-BAUSCH-BL-2018-008769

PATIENT
  Age: 62 Year
  Sex: Male
  Weight: 69.4 kg

DRUGS (9)
  1. LUMICEF [Suspect]
     Active Substance: BRODALUMAB
     Route: 058
     Dates: end: 201803
  2. LUMICEF [Suspect]
     Active Substance: BRODALUMAB
     Dosage: 1 INJECTION SYRINGE IN TWO WEEKS
     Route: 058
     Dates: start: 20170802, end: 20171012
  3. LUMICEF [Suspect]
     Active Substance: BRODALUMAB
     Indication: PSORIASIS
     Dosage: 1 INJECTION SYRINGE EVERY WEEK
     Route: 058
     Dates: start: 20170705, end: 20170719
  4. FEBURIC [Concomitant]
     Active Substance: FEBUXOSTAT
     Indication: HYPERURICAEMIA
     Route: 048
  5. LUMICEF [Suspect]
     Active Substance: BRODALUMAB
     Dosage: 1 INJECTION SYRINGE IN EVERY THREE WEEKS
     Route: 058
     Dates: start: 20171109, end: 20180131
  6. LUMICEF [Suspect]
     Active Substance: BRODALUMAB
     Dosage: 1 INJECTION SYRINGE ONCE DAILY
     Route: 058
     Dates: start: 20171023, end: 20171023
  7. OLMETEC [Concomitant]
     Active Substance: OLMESARTAN MEDOXOMIL
     Indication: HYPERTENSION
     Route: 048
  8. ETHYL ICOSAPENTATE [Concomitant]
     Active Substance: ICOSAPENT ETHYL
     Indication: HYPERLIPIDAEMIA
     Route: 048
  9. PRAVASTATIN SODIUM. [Concomitant]
     Active Substance: PRAVASTATIN SODIUM
     Indication: PRODUCT USED FOR UNKNOWN INDICATION
     Route: 048

REACTIONS (1)
  - Interstitial lung disease [Not Recovered/Not Resolved]

NARRATIVE: CASE EVENT DATE: 20180322
